FAERS Safety Report 4401032-X (Version None)
Quarter: 2004Q3

REPORT INFORMATION
  Report Type: 
  Country: None (occurrence: None)
  Receive Date: 20040907
  Receipt Date: 20030926
  Transmission Date: 20050211
  Serious: No
  Sender: FDA-Public Use
  Company Number: US-BRISTOL-MYERS SQUIBB COMPANY-12395752

PATIENT
  Age: 68 Year
  Sex: Female
  Weight: 118 kg

DRUGS (18)
  1. COUMADIN [Suspect]
     Indication: ATRIAL FIBRILLATION
     Dosage: 5 MG TUE, THURS, SAT., + SUN.; 2.5 MG MON., WED., FRI.
     Route: 048
     Dates: start: 20030808
  2. DICYCLOMINE [Concomitant]
  3. ZANTAC [Concomitant]
  4. LEVSINEX [Concomitant]
  5. KLOR-CON [Concomitant]
  6. MAGNESIUM OXIDE [Concomitant]
  7. VITAMIN D [Concomitant]
  8. VERELAN PM [Concomitant]
  9. QUININE SULFATE [Concomitant]
     Dates: start: 20030101
  10. FOLIC ACID [Concomitant]
  11. COZAAR [Concomitant]
  12. AMILORIDE [Concomitant]
  13. SENOKOT [Concomitant]
  14. VITAMIN B6 [Concomitant]
  15. ATROVENT [Concomitant]
  16. FLONASE [Concomitant]
  17. FUROSEMIDE [Concomitant]
  18. VITAMIN E [Concomitant]

REACTIONS (3)
  - ABDOMINAL DISTENSION [None]
  - GENERALISED OEDEMA [None]
  - LOOSE STOOLS [None]
